FAERS Safety Report 14086360 (Version 1)
Quarter: 2017Q4

REPORT INFORMATION
  Report Type: Report from Study
  Country: US (occurrence: US)
  Receive Date: 20171013
  Receipt Date: 20171013
  Transmission Date: 20180321
  Serious: No
  Sender: FDA-Public Use
  Company Number: US-AMGEN-USASL2017086675

PATIENT
  Age: 77 Year
  Sex: Female

DRUGS (1)
  1. PROLIA [Suspect]
     Active Substance: DENOSUMAB
     Indication: ANTERIOR SPINAL ARTERY SYNDROME
     Dosage: 60 MG, Q6MO
     Route: 065

REACTIONS (6)
  - Blood cholesterol increased [Unknown]
  - Pain in extremity [Unknown]
  - Cystitis [Unknown]
  - Off label use [Unknown]
  - Back pain [Unknown]
  - Myalgia [Unknown]
